FAERS Safety Report 10068412 (Version 1)
Quarter: 2014Q2

REPORT INFORMATION
  Report Type: Spontaneous
  Country: FR (occurrence: FR)
  Receive Date: 20140409
  Receipt Date: 20140409
  Transmission Date: 20141212
  Serious: Yes (Other)
  Sender: FDA-Public Use
  Company Number: FR-JNJFOC-20140318323

PATIENT
  Age: 28 Year
  Sex: Male

DRUGS (4)
  1. HALDOL [Suspect]
     Indication: DELIRIUM
     Route: 048
     Dates: start: 20131222, end: 20131223
  2. HALDOL [Suspect]
     Indication: ACUTE PSYCHOSIS
     Route: 048
     Dates: start: 20131222, end: 20131223
  3. LOXAPAC [Suspect]
     Indication: ACUTE PSYCHOSIS
     Route: 048
     Dates: start: 20131223, end: 201401
  4. SERESTA [Concomitant]
     Dosage: 1.5 DOSE EQUAL TO 50 MG
     Route: 048

REACTIONS (3)
  - Dystonia [Recovered/Resolved]
  - Extrapyramidal disorder [Unknown]
  - Blood creatine phosphokinase increased [Recovered/Resolved]
